FAERS Safety Report 8776607 (Version 4)
Quarter: 2013Q1

REPORT INFORMATION
  Report Type: Report from Study
  Country: JP (occurrence: JP)
  Receive Date: 20120910
  Receipt Date: 20130221
  Transmission Date: 20140127
  Serious: Yes (Death, Other)
  Sender: FDA-Public Use
  Company Number: PHHY2012JP077809

PATIENT
  Age: 88 Year
  Sex: Female

DRUGS (2)
  1. EXELON [Suspect]
     Indication: DEMENTIA ALZHEIMER^S TYPE
     Dosage: 4.5 MG, DAILY
     Route: 062
     Dates: start: 20111209, end: 20120106
  2. EXELON [Suspect]
     Dosage: 9  MG, DAILY
     Route: 062
     Dates: start: 20120107, end: 20120126

REACTIONS (6)
  - Bile duct cancer [Fatal]
  - Hepatic failure [Unknown]
  - Portal vein occlusion [Unknown]
  - Metastases to liver [Unknown]
  - Hepatic cancer [Unknown]
  - Jaundice [Unknown]
